FAERS Safety Report 8223886-1 (Version None)
Quarter: 2012Q1

REPORT INFORMATION
  Report Type: 
  Country: None (occurrence: None)
  Receive Date: 20120321
  Receipt Date: 20120316
  Transmission Date: 20120608
  Serious: Yes (Other)
  Sender: FDA-Public Use
  Company Number: US-PFIZER INC-2012070104

PATIENT
  Sex: Male

DRUGS (2)
  1. VIAGRA [Suspect]
     Dosage: UNK
  2. LEVITRA [Concomitant]
     Dosage: UNK

REACTIONS (2)
  - PROSTATIC DISORDER [None]
  - NEOPLASM MALIGNANT [None]
